FAERS Safety Report 25715426 (Version 1)
Quarter: 2025Q3

REPORT INFORMATION
  Report Type: Other
  Country: CA (occurrence: CA)
  Receive Date: 20250822
  Receipt Date: 20250822
  Transmission Date: 20251021
  Serious: Yes (Other)
  Sender: APOTEX
  Company Number: CA-PGRTD-001147895

PATIENT
  Age: 51 Year
  Sex: Male

DRUGS (1)
  1. MODAFINIL [Suspect]
     Active Substance: MODAFINIL
     Indication: Product used for unknown indication
     Route: 048

REACTIONS (6)
  - Peripheral coldness [Recovering/Resolving]
  - Product substitution issue [Recovering/Resolving]
  - Palpitations [Recovering/Resolving]
  - Tremor [Recovering/Resolving]
  - Epistaxis [Recovering/Resolving]
  - Anxiety [Recovering/Resolving]
